FAERS Safety Report 21664273 (Version 5)
Quarter: 2023Q2

REPORT INFORMATION
  Report Type: Report from Study
  Country: CN (occurrence: CN)
  Receive Date: 20221130
  Receipt Date: 20230421
  Transmission Date: 20230722
  Serious: Yes (Hospitalization)
  Sender: FDA-Public Use
  Company Number: CN-GILEAD-2022-0606603

PATIENT
  Sex: Male
  Weight: 70 kg

DRUGS (9)
  1. SACITUZUMAB GOVITECAN [Suspect]
     Active Substance: SACITUZUMAB GOVITECAN
     Indication: Transitional cell carcinoma
     Dosage: ^760^, EVERY 21 DAYS (C1D1 14-OCT-2022, C2D1 04-NOV-2022)
     Route: 042
     Dates: start: 20221014, end: 20221104
  2. CELECOXIB [Concomitant]
     Active Substance: CELECOXIB
     Indication: Headache
     Dosage: UNK
     Dates: start: 20221026
  3. PREGABALIN [Concomitant]
     Active Substance: PREGABALIN
     Indication: Headache
     Dosage: UNK
     Dates: start: 20221026
  4. FLUNARIZINE HYDROCHLORIDE [Concomitant]
     Active Substance: FLUNARIZINE HYDROCHLORIDE
     Indication: Headache
     Dosage: UNK
     Dates: start: 20221019
  5. CARBAMAZEPINE [Concomitant]
     Active Substance: CARBAMAZEPINE
     Indication: Headache
     Dosage: UNK
     Dates: start: 20221019
  6. DIPHENHYDRAMINE [Concomitant]
     Active Substance: DIPHENHYDRAMINE
     Indication: Rash
     Dosage: UNK
     Dates: start: 20221108
  7. LORATADINE [Concomitant]
     Active Substance: LORATADINE
     Indication: Rash
     Dosage: UNK
     Dates: start: 20221110
  8. DEXAMETHASONE SODIUM PHOSPHATE [Concomitant]
     Active Substance: DEXAMETHASONE SODIUM PHOSPHATE
     Indication: Rash
     Dosage: UNK
     Dates: start: 20221111
  9. LEVOCETIRIZINE HYDROCHLORIDE [Concomitant]
     Active Substance: LEVOCETIRIZINE HYDROCHLORIDE

REACTIONS (2)
  - Fatigue [Not Recovered/Not Resolved]
  - Headache [Not Recovered/Not Resolved]

NARRATIVE: CASE EVENT DATE: 20221125
